FAERS Safety Report 6384504-0 (Version None)
Quarter: 2009Q3

REPORT INFORMATION
  Report Type: 
  Country: None (occurrence: None)
  Receive Date: 20090925
  Receipt Date: 20090312
  Transmission Date: 20100115
  Serious: Yes (Other)
  Sender: FDA-Public Use
  Company Number: 57595

PATIENT
  Age: 20 Year
  Sex: Female
  Weight: 58.9676 kg

DRUGS (1)
  1. BUTORPHANOL TARTRATE [Suspect]
     Indication: LABOUR PAIN
     Dosage: 1MG 1V
     Route: 042
     Dates: start: 20090312

REACTIONS (1)
  - RASH PRURITIC [None]
